FAERS Safety Report 6852359-3 (Version None)
Quarter: 2010Q3

REPORT INFORMATION
  Report Type: 
  Country: None (occurrence: None)
  Receive Date: 20100717
  Receipt Date: 20071112
  Transmission Date: 20110219
  Serious: Yes (Other)
  Sender: FDA-Public Use
  Company Number: US-PFIZER INC-2007095865

PATIENT
  Sex: Male
  Weight: 80.9 kg

DRUGS (3)
  1. CHANTIX [Suspect]
     Indication: SMOKING CESSATION THERAPY
     Dates: start: 20070926, end: 20071005
  2. ZOCOR [Concomitant]
  3. TOPROL-XL [Concomitant]

REACTIONS (2)
  - FEELINGS OF WORTHLESSNESS [None]
  - SUICIDAL IDEATION [None]
